FAERS Safety Report 8005562-3 (Version None)
Quarter: 2011Q4

REPORT INFORMATION
  Report Type: 
  Country: None (occurrence: None)
  Receive Date: 20111223
  Receipt Date: 20111209
  Transmission Date: 20120403
  Serious: Yes (Hospitalization)
  Sender: FDA-Public Use
  Company Number: GB-CELGENEUS-167-21880-11103172

PATIENT
  Sex: Female
  Weight: 62.2 kg

DRUGS (11)
  1. DEXAMETHASONE [Suspect]
     Route: 048
     Dates: start: 20101013, end: 20101201
  2. OMEPRAZOLE [Concomitant]
     Indication: ULCER
     Dosage: 40 MILLIGRAM
     Route: 048
     Dates: start: 20101205, end: 20101219
  3. ZOLEDRONIC ACID [Suspect]
     Indication: MULTIPLE MYELOMA
     Dosage: .1 MILLIGRAM
     Route: 041
     Dates: start: 20100303
  4. CALCEOS [Concomitant]
     Indication: VITAMIN SUPPLEMENTATION
     Route: 048
     Dates: start: 20101205, end: 20101219
  5. DEXAMETHASONE [Suspect]
     Indication: MULTIPLE MYELOMA
     Route: 048
     Dates: start: 20100303, end: 20100817
  6. DEXAMETHASONE [Suspect]
     Route: 048
     Dates: start: 20100818, end: 20101012
  7. MAGNESIUM OXIDE [Concomitant]
     Route: 048
     Dates: start: 20101208, end: 20101209
  8. REVLIMID [Suspect]
     Dosage: 7.5 MILLIGRAM
     Route: 048
     Dates: start: 20110126
  9. REVLIMID [Suspect]
     Indication: MULTIPLE MYELOMA
     Route: 048
     Dates: start: 20100303, end: 20101201
  10. DEXAMETHASONE [Suspect]
     Route: 048
     Dates: start: 20110126
  11. SODIUM BICARBONATE [Concomitant]
     Route: 048
     Dates: start: 20101207, end: 20101213

REACTIONS (5)
  - HAEMATURIA [None]
  - SEPSIS [None]
  - RENAL FAILURE ACUTE [None]
  - INTERNATIONAL NORMALISED RATIO INCREASED [None]
  - PYREXIA [None]
